FAERS Safety Report 18696087 (Version 1)
Quarter: 2021Q1

REPORT INFORMATION
  Report Type: Spontaneous
  Country: IT (occurrence: IT)
  Receive Date: 20210104
  Receipt Date: 20210104
  Transmission Date: 20210419
  Serious: Yes (Other)
  Sender: FDA-Public Use
  Company Number: IT-MYLANLABS-2020M1106855

PATIENT
  Age: 54 Year
  Sex: Female

DRUGS (4)
  1. FLUCONAZOLE. [Suspect]
     Active Substance: FLUCONAZOLE
     Indication: ONYCHOMYCOSIS
     Dosage: UNK
     Route: 048
  2. TROSYD [Suspect]
     Active Substance: TIOCONAZOLE
     Indication: ONYCHOMYCOSIS
     Dosage: UNK
     Route: 061
  3. DIFLUCORTOLONE VALERATE W/ISOCONAZOLE [Concomitant]
     Indication: ONYCHOMYCOSIS
     Dosage: UNK
     Route: 061
  4. TIOCONAZOLE. [Suspect]
     Active Substance: TIOCONAZOLE
     Indication: ONYCHOMYCOSIS
     Dosage: UNK
     Route: 061

REACTIONS (2)
  - Dermatitis contact [Unknown]
  - Therapeutic product cross-reactivity [Unknown]
